FAERS Safety Report 9004810 (Version 1)
Quarter: 2013Q1

REPORT INFORMATION
  Report Type: Spontaneous
  Country: US (occurrence: None)
  Receive Date: 20130107
  Receipt Date: 20130107
  Transmission Date: 20140127
  Serious: Yes (Hospitalization)
  Sender: FDA-Public Use
  Company Number: None

PATIENT
  Age: 43 Year
  Sex: Female

DRUGS (1)
  1. BYDUREON [Suspect]
     Indication: GLUCOSE TOLERANCE IMPAIRED
     Dosage: 2 MG. 1X WEEKLY
     Route: 058
     Dates: start: 20121104, end: 20121125

REACTIONS (6)
  - Injection site pruritus [None]
  - Urticaria [None]
  - Local swelling [None]
  - Local swelling [None]
  - Pain in extremity [None]
  - Asthenia [None]
